FAERS Safety Report 20136506 (Version 1)
Quarter: 2021Q4

REPORT INFORMATION
  Report Type: Spontaneous
  Country: US (occurrence: None)
  Receive Date: 20211201
  Receipt Date: 20211201
  Transmission Date: 20220303
  Serious: Yes (Other)
  Sender: FDA-Public Use
  Company Number: None

PATIENT
  Age: 41 Year
  Sex: Male
  Weight: 81.6 kg

DRUGS (1)
  1. BAMLANIVIMAB\ETESEVIMAB [Suspect]
     Active Substance: BAMLANIVIMAB\ETESEVIMAB
     Dosage: OTHER FREQUENCY : ONCE;?
     Route: 042
     Dates: start: 20211124, end: 20211124

REACTIONS (6)
  - Dizziness [None]
  - Hyperhidrosis [None]
  - Presyncope [None]
  - Pallor [None]
  - Heart rate decreased [None]
  - Blood glucose increased [None]

NARRATIVE: CASE EVENT DATE: 20211124
